FAERS Safety Report 16900297 (Version 1)
Quarter: 2019Q4

REPORT INFORMATION
  Report Type: Spontaneous
  Country: US (occurrence: US)
  Receive Date: 20190816
  Receipt Date: 20190816
  Transmission Date: 20200122
  Serious: Yes (Hospitalization)
  Sender: FDA-Public Use
  Company Number: None

PATIENT
  Age: 69 Year
  Sex: Male
  Weight: 52.1 kg

DRUGS (1)
  1. PEMETREXED. [Suspect]
     Active Substance: PEMETREXED
     Indication: HYPERTENSION

REACTIONS (15)
  - Lymphangitis [None]
  - Lung adenocarcinoma recurrent [None]
  - Pulmonary mass [None]
  - Atelectasis [None]
  - Leukocytosis [None]
  - White blood cell count decreased [None]
  - Right ventricular systolic pressure increased [None]
  - Metastatic neoplasm [None]
  - Lung adenocarcinoma stage III [None]
  - Pneumonia [None]
  - Atrial fibrillation [None]
  - Bronchial obstruction [None]
  - Cardiac flutter [None]
  - Neoplasm progression [None]
  - Inappropriate schedule of product administration [None]

NARRATIVE: CASE EVENT DATE: 20190812
